FAERS Safety Report 12373115 (Version 1)
Quarter: 2016Q2

REPORT INFORMATION
  Report Type: Report from Study
  Country: US (occurrence: US)
  Receive Date: 20160516
  Receipt Date: 20160516
  Transmission Date: 20160815
  Serious: Yes (Death, Other)
  Sender: FDA-Public Use
  Company Number: US-GILEAD-2016-0213394

PATIENT
  Age: 64 Year
  Sex: Female

DRUGS (12)
  1. ADCIRCA [Concomitant]
     Active Substance: TADALAFIL
  2. PROCARDIA [Concomitant]
     Active Substance: NIFEDIPINE
  3. HYDROCODONE [Concomitant]
     Active Substance: HYDROCODONE
  4. PANTOPRAZOLE [Concomitant]
     Active Substance: PANTOPRAZOLE SODIUM
  5. ADVAIR HFA [Concomitant]
     Active Substance: FLUTICASONE PROPIONATE\SALMETEROL XINAFOATE
  6. FUROSEMIDE. [Concomitant]
     Active Substance: FUROSEMIDE
  7. SPIRONOLACTONE. [Concomitant]
     Active Substance: SPIRONOLACTONE
  8. LEVOTHYROXINE. [Concomitant]
     Active Substance: LEVOTHYROXINE
  9. AMBRISENTAN [Suspect]
     Active Substance: AMBRISENTAN
     Indication: PULMONARY ARTERIAL HYPERTENSION
     Dosage: 10 MG, QD
     Route: 065
     Dates: start: 20081113, end: 20160330
  10. PROAIR HFA [Concomitant]
     Active Substance: ALBUTEROL SULFATE
  11. PREDNISONE. [Concomitant]
     Active Substance: PREDNISONE
  12. SPIRIVA [Concomitant]
     Active Substance: TIOTROPIUM BROMIDE MONOHYDRATE

REACTIONS (1)
  - Death [Fatal]

NARRATIVE: CASE EVENT DATE: 20160505
